FAERS Safety Report 14227212 (Version 10)
Quarter: 2018Q4

REPORT INFORMATION
  Report Type: Report from Study
  Country: US (occurrence: US)
  Receive Date: 20171127
  Receipt Date: 20181005
  Transmission Date: 20190204
  Serious: Yes (Life-Threatening, Other)
  Sender: FDA-Public Use
  Company Number: US-TESARO, INC-US-2017TSO03179

PATIENT
  Age: 71 Year
  Sex: Female

DRUGS (9)
  1. ZEJULA [Suspect]
     Active Substance: NIRAPARIB
     Dosage: 200 MG, QD
     Route: 048
  2. ZEJULA [Suspect]
     Active Substance: NIRAPARIB
     Dosage: 200 MG, UNK
     Route: 048
     Dates: start: 20180108
  3. ZEJULA [Suspect]
     Active Substance: NIRAPARIB
     Dosage: 100 MG, QD
     Route: 048
  4. ZEJULA [Suspect]
     Active Substance: NIRAPARIB
     Dosage: 200 MG QD
     Route: 048
     Dates: end: 20180117
  5. ZEJULA [Suspect]
     Active Substance: NIRAPARIB
     Dosage: 200 MG, QD
     Route: 048
  6. ZEJULA [Suspect]
     Active Substance: NIRAPARIB
     Dosage: 100 MG, QD
     Route: 048
     Dates: start: 201801
  7. ZEJULA [Suspect]
     Active Substance: NIRAPARIB
     Dosage: 200 MG, QD
     Route: 048
  8. ZEJULA [Suspect]
     Active Substance: NIRAPARIB
     Dosage: 200 MG, UNK
     Route: 048
  9. ZEJULA [Suspect]
     Active Substance: NIRAPARIB
     Indication: OVARIAN CANCER
     Dosage: 200 MG QD
     Route: 048
     Dates: start: 201707

REACTIONS (29)
  - Dehydration [Not Recovered/Not Resolved]
  - Fall [Not Recovered/Not Resolved]
  - Hypertensive crisis [Not Recovered/Not Resolved]
  - Post herpetic neuralgia [Not Recovered/Not Resolved]
  - Dry mouth [Not Recovered/Not Resolved]
  - Blood creatinine increased [Recovering/Resolving]
  - Myalgia [Not Recovered/Not Resolved]
  - Anaemia [Not Recovered/Not Resolved]
  - Sleep disorder [Not Recovered/Not Resolved]
  - Platelet count decreased [Unknown]
  - Herpes zoster [Not Recovered/Not Resolved]
  - Insomnia [Not Recovered/Not Resolved]
  - Haemoglobin decreased [Unknown]
  - Muscle spasms [Not Recovered/Not Resolved]
  - Blood creatinine decreased [Recovered/Resolved]
  - Asthenia [Unknown]
  - Blood pressure increased [Not Recovered/Not Resolved]
  - Haematocrit decreased [Recovering/Resolving]
  - Stress [Not Recovered/Not Resolved]
  - Fatigue [Unknown]
  - Loss of consciousness [Not Recovered/Not Resolved]
  - Carbohydrate antigen 125 increased [Not Recovered/Not Resolved]
  - Intentional underdose [Not Recovered/Not Resolved]
  - Weight decreased [Not Recovered/Not Resolved]
  - Bundle branch block right [Unknown]
  - Blood pressure decreased [Not Recovered/Not Resolved]
  - Peripheral swelling [Not Recovered/Not Resolved]
  - Renal disorder [Not Recovered/Not Resolved]
  - Nausea [Not Recovered/Not Resolved]

NARRATIVE: CASE EVENT DATE: 201707
